FAERS Safety Report 13157723 (Version 1)
Quarter: 2017Q1

REPORT INFORMATION
  Report Type: Spontaneous
  Country: US (occurrence: US)
  Receive Date: 20170127
  Receipt Date: 20170127
  Transmission Date: 20170428
  Serious: No
  Sender: FDA-Public Use
  Company Number: US-JNJFOC-20161209354

PATIENT
  Sex: Female
  Weight: 106.6 kg

DRUGS (3)
  1. REMICADE [Suspect]
     Active Substance: INFLIXIMAB
     Indication: CROHN^S DISEASE
     Route: 042
     Dates: start: 2007, end: 2013
  2. LEVBID [Concomitant]
     Active Substance: HYOSCYAMINE SULFATE
     Route: 065
  3. ASACOL [Concomitant]
     Active Substance: MESALAMINE
     Route: 065

REACTIONS (2)
  - Drug specific antibody present [Unknown]
  - Exposure during pregnancy [Recovered/Resolved]

NARRATIVE: CASE EVENT DATE: 2011
